FAERS Safety Report 14336893 (Version 1)
Quarter: 2017Q4

REPORT INFORMATION
  Report Type: Spontaneous
  Country: US (occurrence: US)
  Receive Date: 20171229
  Receipt Date: 20171229
  Transmission Date: 20180321
  Serious: No
  Sender: FDA-Public Use
  Company Number: US-009507513-1712USA011440

PATIENT
  Age: 23 Year
  Sex: Female
  Weight: 49.89 kg

DRUGS (2)
  1. NUVARING [Suspect]
     Active Substance: ETHINYL ESTRADIOL\ETONOGESTREL
     Indication: MIGRAINE
     Dosage: 3 WEEKS INSIDE THEN A NEW RING INSIDE
     Route: 067
  2. ALDACTONE [Concomitant]
     Active Substance: SPIRONOLACTONE

REACTIONS (3)
  - Migraine [Unknown]
  - Product use in unapproved indication [Unknown]
  - Inappropriate schedule of drug administration [Unknown]
